FAERS Safety Report 12393849 (Version 2)
Quarter: 2016Q2

REPORT INFORMATION
  Report Type: Spontaneous
  Country: CN (occurrence: CN)
  Receive Date: 20160523
  Receipt Date: 20160525
  Transmission Date: 20160815
  Serious: Yes (Other)
  Sender: FDA-Public Use
  Company Number: CN-PFIZER INC-2016265806

PATIENT
  Age: 8 Year
  Sex: Female

DRUGS (4)
  1. SOLU-MEDROL [Suspect]
     Active Substance: METHYLPREDNISOLONE SODIUM SUCCINATE
     Indication: HENOCH-SCHONLEIN PURPURA
     Dosage: 2 MG/KG, UNK
  2. HYDROCORTISONE ACETATE. [Concomitant]
     Active Substance: HYDROCORTISONE ACETATE
  3. ORNIDAZOLE [Concomitant]
     Active Substance: ORNIDAZOLE
  4. LATAMOXEF SODIUM [Concomitant]

REACTIONS (3)
  - Proteinuria [Recovered/Resolved]
  - Haematuria [Unknown]
  - Abdominal pain [Not Recovered/Not Resolved]
